FAERS Safety Report 22313655 (Version 1)
Quarter: 2023Q2

REPORT INFORMATION
  Report Type: Spontaneous
  Country: JP (occurrence: JP)
  Receive Date: 20230512
  Receipt Date: 20230512
  Transmission Date: 20230722
  Serious: Yes (Life-Threatening)
  Sender: FDA-Public Use
  Company Number: JP-TAKEDA-2023TJP005702

PATIENT
  Age: 65 Year
  Sex: Male
  Weight: 70 kg

DRUGS (3)
  1. FEIBA NF [Suspect]
     Active Substance: ANTI-INHIBITOR COAGULANT COMPLEX
     Indication: Haemorrhagic diathesis
     Dosage: 200 INTERNATIONAL UNIT/KILOGRAM
     Route: 042
     Dates: start: 20230502, end: 20230507
  2. FEIBA NF [Suspect]
     Active Substance: ANTI-INHIBITOR COAGULANT COMPLEX
     Dosage: 50 INTERNATIONAL UNIT/KILOGRAM, BID
     Route: 042
     Dates: start: 20230508, end: 20230510
  3. FEIBA NF [Suspect]
     Active Substance: ANTI-INHIBITOR COAGULANT COMPLEX
     Dosage: 17 INTERNATIONAL UNIT/KILOGRAM
     Route: 042
     Dates: start: 20230511

REACTIONS (1)
  - Haemoglobin decreased [Unknown]
